FAERS Safety Report 19107337 (Version 1)
Quarter: 2021Q2

REPORT INFORMATION
  Report Type: Spontaneous
  Country: CH (occurrence: CH)
  Receive Date: 20210408
  Receipt Date: 20210408
  Transmission Date: 20210717
  Serious: Yes (Other)
  Sender: FDA-Public Use
  Company Number: CH-MICRO LABS LIMITED-ML2021-01045

PATIENT

DRUGS (4)
  1. IOMEPROL [Suspect]
     Active Substance: IOMEPROL
  2. METAMIZOLE [Suspect]
     Active Substance: METAMIZOLE
  3. PIPERACILLIN. [Suspect]
     Active Substance: PIPERACILLIN SODIUM
  4. LEVOFLOXACIN. [Suspect]
     Active Substance: LEVOFLOXACIN

REACTIONS (1)
  - Drug reaction with eosinophilia and systemic symptoms [Unknown]
